FAERS Safety Report 9106801 (Version 1)
Quarter: 2013Q1

REPORT INFORMATION
  Report Type: Spontaneous
  Country: US (occurrence: US)
  Receive Date: 20130222
  Receipt Date: 20130222
  Transmission Date: 20140127
  Serious: Yes (Other)
  Sender: FDA-Public Use
  Company Number: US-ELI_LILLY_AND_COMPANY-US201302004710

PATIENT
  Sex: Male

DRUGS (9)
  1. AXIRON [Suspect]
     Indication: BLOOD TESTOSTERONE DECREASED
     Dosage: 60 MG, QD
     Dates: end: 201301
  2. AXIRON [Suspect]
     Dosage: 30 MG, QD
     Dates: start: 201301, end: 20130203
  3. SYNTHROID [Concomitant]
     Dosage: 75 G, UNK
  4. COZAAR [Concomitant]
     Dosage: 50 MG, UNK
  5. CRESTOR [Concomitant]
     Dosage: 20 MG, UNK
  6. HYDROCHLOORTHIAZIDE [Concomitant]
     Dosage: 12 MG, UNK
  7. PLAVIX [Concomitant]
     Dosage: 75 MG, 4/W
  8. LOVAZA [Concomitant]
  9. OMEPRAZOLE [Concomitant]

REACTIONS (4)
  - Coronary artery occlusion [Unknown]
  - Influenza [Unknown]
  - Weight increased [Unknown]
  - Breast pain [Unknown]
